FAERS Safety Report 7524957-5 (Version None)
Quarter: 2011Q2

REPORT INFORMATION
  Report Type: 
  Country: None (occurrence: None)
  Receive Date: 20110526
  Receipt Date: 20110514
  Transmission Date: 20111010
  Serious: Yes (Hospitalization)
  Sender: FDA-Public Use
  Company Number: 2011AP000994

PATIENT
  Age: 33 Year
  Sex: Female

DRUGS (3)
  1. LITHIUM CARBONATE [Suspect]
     Indication: PRODUCT USED FOR UNKNOWN INDICATION
  2. ALCOHOL [Suspect]
     Indication: PRODUCT USED FOR UNKNOWN INDICATION
  3. ESCITALOPRAM OXALATE TABLETS, 20 MG [Suspect]
     Indication: PRODUCT USED FOR UNKNOWN INDICATION

REACTIONS (8)
  - AGGRESSION [None]
  - LETHARGY [None]
  - DRUG INTERACTION [None]
  - SUICIDE ATTEMPT [None]
  - MENTAL STATUS CHANGES [None]
  - SINUS BRADYCARDIA [None]
  - ELECTROCARDIOGRAM QT PROLONGED [None]
  - MULTIPLE DRUG OVERDOSE INTENTIONAL [None]
